FAERS Safety Report 25036115 (Version 1)
Quarter: 2025Q1

REPORT INFORMATION
  Report Type: Spontaneous
  Country: US (occurrence: US)
  Receive Date: 20250304
  Receipt Date: 20250304
  Transmission Date: 20250409
  Serious: Yes (Other)
  Sender: RECORDATI
  Company Number: US-RECORDATI-2024004410

PATIENT

DRUGS (2)
  1. OSILODROSTAT [Suspect]
     Active Substance: OSILODROSTAT
     Indication: Hyperadrenocorticism
     Dosage: 2 MG, BID
  2. OSILODROSTAT [Suspect]
     Active Substance: OSILODROSTAT
     Dosage: 3 MG, BID (OVER A PERIOD OF 3 MONTHS)

REACTIONS (3)
  - Adrenal insufficiency [Recovered/Resolved]
  - Blood corticotrophin increased [Recovered/Resolved]
  - Therapeutic product effect prolonged [Recovered/Resolved]
